FAERS Safety Report 6156027-5 (Version None)
Quarter: 2009Q2

REPORT INFORMATION
  Report Type: 
  Country: None (occurrence: None)
  Receive Date: 20090413
  Receipt Date: 20090402
  Transmission Date: 20091009
  Serious: Yes (Other)
  Sender: FDA-Public Use
  Company Number: A-US2007-14599

PATIENT
  Age: 85 Year
  Sex: Male

DRUGS (6)
  1. TRACLEER [Suspect]
     Indication: PULMONARY HYPERTENSION
     Dosage: ORAL
     Route: 048
     Dates: start: 20070104
  2. LIPITOR [Concomitant]
  3. MECLIZINE [Concomitant]
  4. LASIX [Concomitant]
  5. FOSAMAX [Concomitant]
  6. FOLIC ACID [Concomitant]

REACTIONS (7)
  - COUGH [None]
  - DIZZINESS [None]
  - DYSPNOEA [None]
  - MYELODYSPLASTIC SYNDROME [None]
  - OFF LABEL USE [None]
  - PULMONARY HYPERTENSION [None]
  - RHINITIS [None]
